FAERS Safety Report 6065751-4 (Version None)
Quarter: 2009Q1

REPORT INFORMATION
  Report Type: 
  Country: None (occurrence: None)
  Receive Date: 20090202
  Receipt Date: 20090120
  Transmission Date: 20090719
  Serious: Yes (Hospitalization)
  Sender: FDA-Public Use
  Company Number: 2009PL000030

PATIENT
  Age: 21 Year
  Sex: Female
  Weight: 63 kg

DRUGS (5)
  1. IMURAN [Suspect]
     Indication: CROHN'S DISEASE
     Dosage: 2.5 MG/KG/QD/PO
     Route: 048
     Dates: start: 20050425
  2. AZATHIOPRINE (INFLIXIMAB, RECOMBINANT COMPARATOR) TABLET [Suspect]
     Indication: CROHN'S DISEASE
     Dosage: 2.5 MG/KG;QD;PO
     Route: 048
     Dates: start: 20050425
  3. PLACEBO (PLACEBO) LYOPHILIZED POWDER [Suspect]
     Indication: CROHN'S DISEASE
     Dosage: 5 MG/KG;QD
     Dates: start: 20050425, end: 20050506
  4. ASACOL [Concomitant]
  5. ORTHO TRI-CYCLEN [Concomitant]

REACTIONS (14)
  - ABDOMINAL PAIN UPPER [None]
  - DEHYDRATION [None]
  - DRUG INTERACTION [None]
  - DUODENITIS [None]
  - FATIGUE [None]
  - GASTRITIS [None]
  - HAEMATEMESIS [None]
  - HAEMATOCHEZIA [None]
  - HYPERSOMNIA [None]
  - HYPOVOLAEMIA [None]
  - INFREQUENT BOWEL MOVEMENTS [None]
  - MESENTERIC PANNICULITIS [None]
  - PYREXIA [None]
  - VOMITING [None]
